FAERS Safety Report 7098078-2 (Version None)
Quarter: 2010Q4

REPORT INFORMATION
  Report Type: 
  Country: None (occurrence: None)
  Receive Date: 20101104
  Receipt Date: 20100219
  Transmission Date: 20110411
  Serious: Yes (Death, Hospitalization)
  Sender: FDA-Public Use
  Company Number: 002791

PATIENT
  Sex: Male

DRUGS (3)
  1. CIMZIA [Suspect]
     Indication: CROHN'S DISEASE
     Dosage: (400 MG 1X/MONTH SUBCUTANEOUS)
     Route: 058
     Dates: start: 20061107, end: 20090702
  2. COLCHICINE [Concomitant]
  3. AZATHIOPRINE [Concomitant]

REACTIONS (35)
  - ACIDOSIS [None]
  - ACUTE RESPIRATORY DISTRESS SYNDROME [None]
  - AGITATION [None]
  - ANASTOMOTIC COMPLICATION [None]
  - ANXIETY [None]
  - ASPIRATION [None]
  - ATRIAL FIBRILLATION [None]
  - BLOOD LACTIC ACID INCREASED [None]
  - BRADYARRHYTHMIA [None]
  - CARDIOVASCULAR INSUFFICIENCY [None]
  - CLOSTRIDIUM COLITIS [None]
  - CONDITION AGGRAVATED [None]
  - CRITICAL ILLNESS POLYNEUROPATHY [None]
  - CROHN'S DISEASE [None]
  - DELIRIUM [None]
  - DEVICE RELATED INFECTION [None]
  - ENTEROBACTER PNEUMONIA [None]
  - GENERALISED OEDEMA [None]
  - HAEMODIALYSIS [None]
  - HAEMODYNAMIC INSTABILITY [None]
  - HALLUCINATION [None]
  - HEPATIC HAEMATOMA [None]
  - LUNG NEOPLASM [None]
  - MULTI-ORGAN FAILURE [None]
  - MUSCLE RIGIDITY [None]
  - PARAPARESIS [None]
  - PERITONEAL HAEMORRHAGE [None]
  - PLEURAL EFFUSION [None]
  - PNEUMONIA KLEBSIELLA [None]
  - PNEUMONIA STAPHYLOCOCCAL [None]
  - RENAL FAILURE ACUTE [None]
  - RESPIRATORY FAILURE [None]
  - RESTRICTIVE PULMONARY DISEASE [None]
  - SEPTIC SHOCK [None]
  - TACHYCARDIA [None]
